FAERS Safety Report 9149923 (Version 1)
Quarter: 2013Q1

REPORT INFORMATION
  Report Type: Spontaneous
  Country: US (occurrence: None)
  Receive Date: 20130301
  Receipt Date: 20130301
  Transmission Date: 20140127
  Serious: Yes (Other)
  Sender: FDA-Public Use
  Company Number: None

PATIENT
  Age: 62 Year
  Sex: Female
  Weight: 74.84 kg

DRUGS (1)
  1. ESCALIPRAM -LEXAPRO GENERIC- 20 MF [Suspect]
     Indication: DEPRESSION
     Dosage: 20 MG  1 PER DAY  PO
     Route: 048

REACTIONS (4)
  - Drug ineffective [None]
  - Product substitution issue [None]
  - Depression [None]
  - Suicidal ideation [None]
